FAERS Safety Report 19765324 (Version 3)
Quarter: 2021Q4

REPORT INFORMATION
  Report Type: Spontaneous
  Country: US (occurrence: US)
  Receive Date: 20210830
  Receipt Date: 20211129
  Transmission Date: 20220303
  Serious: Yes (Other)
  Sender: FDA-Public Use
  Company Number: US-JNJFOC-20210855351

PATIENT
  Age: 7 Decade
  Sex: Female

DRUGS (3)
  1. ELMIRON [Suspect]
     Active Substance: PENTOSAN POLYSULFATE SODIUM
     Indication: Cystitis interstitial
     Route: 048
     Dates: start: 200605, end: 201506
  2. ELMIRON [Suspect]
     Active Substance: PENTOSAN POLYSULFATE SODIUM
     Route: 048
     Dates: start: 200505, end: 202006
  3. WELLBUTRIN [Concomitant]
     Active Substance: BUPROPION HYDROCHLORIDE
     Indication: Anxiety
     Dates: start: 2003

REACTIONS (2)
  - Macular degeneration [Not Recovered/Not Resolved]
  - Retinal pigmentation [Not Recovered/Not Resolved]

NARRATIVE: CASE EVENT DATE: 20180101
